FAERS Safety Report 11198170 (Version 2)
Quarter: 2015Q3

REPORT INFORMATION
  Report Type: Spontaneous
  Country: US (occurrence: US)
  Receive Date: 20150618
  Receipt Date: 20150714
  Transmission Date: 20151125
  Serious: No
  Sender: FDA-Public Use
  Company Number: US-ASTRAZENECA-2015SE47785

PATIENT
  Sex: Female
  Weight: 68 kg

DRUGS (10)
  1. SYMBICORT [Suspect]
     Active Substance: BUDESONIDE\FORMOTEROL FUMARATE DIHYDRATE
     Indication: BRONCHITIS
     Dosage: 160/4.5 MCG, TWO PUFFS BID.
     Route: 055
     Dates: start: 20150419
  2. VIT C OTC [Concomitant]
     Route: 048
  3. CALCIUM OTC [Concomitant]
     Route: 048
  4. ZINC OTC [Concomitant]
     Route: 048
  5. TEA [Concomitant]
     Active Substance: TEA LEAF
     Route: 048
  6. VIT D OTC [Concomitant]
     Route: 048
  7. NEXIUM [Suspect]
     Active Substance: ESOMEPRAZOLE MAGNESIUM
     Indication: DYSPEPSIA
     Route: 048
  8. SYMBICORT [Suspect]
     Active Substance: BUDESONIDE\FORMOTEROL FUMARATE DIHYDRATE
     Indication: CHRONIC OBSTRUCTIVE PULMONARY DISEASE
     Dosage: 160/4.5 MCG, TWO PUFFS BID.
     Route: 055
     Dates: start: 20150419
  9. ST JOHN WORT OTC [Concomitant]
     Route: 048
  10. SOY OTC [Concomitant]
     Route: 048

REACTIONS (6)
  - Cough [Recovered/Resolved]
  - Drug dose omission [Recovered/Resolved]
  - Intentional product misuse [Not Recovered/Not Resolved]
  - Product quality issue [Unknown]
  - Off label use [Not Recovered/Not Resolved]
  - Device malfunction [Unknown]
